FAERS Safety Report 24235200 (Version 2)
Quarter: 2024Q3

REPORT INFORMATION
  Report Type: Spontaneous
  Country: US (occurrence: US)
  Receive Date: 20240821
  Receipt Date: 20240902
  Transmission Date: 20241017
  Serious: Yes (Other)
  Sender: APELLIS PHARMACEUTICALS
  Company Number: US-APELLIS-2024-APL-0000694

PATIENT

DRUGS (2)
  1. SYFOVRE [Suspect]
     Active Substance: PEGCETACOPLAN
     Indication: Dry age-related macular degeneration
     Dosage: RIGHT EYE, EVERY 8-10 WEEKS
     Dates: start: 20231113, end: 20240708
  2. SYFOVRE [Suspect]
     Active Substance: PEGCETACOPLAN
     Indication: Dry age-related macular degeneration
     Dosage: LEFT EYE, EVERY 8-10 WEEKS
     Dates: start: 20231211, end: 20240205

REACTIONS (6)
  - Neovascular age-related macular degeneration [Recovering/Resolving]
  - Retinal haemorrhage [Recovered/Resolved with Sequelae]
  - Visual impairment [Not Recovered/Not Resolved]
  - Neovascular age-related macular degeneration [Recovering/Resolving]
  - Retinal haemorrhage [Recovered/Resolved with Sequelae]
  - Visual impairment [Not Recovered/Not Resolved]

NARRATIVE: CASE EVENT DATE: 20240402
